FAERS Safety Report 13486274 (Version 2)
Quarter: 2017Q2

REPORT INFORMATION
  Report Type: Spontaneous
  Country: US (occurrence: US)
  Receive Date: 20170426
  Receipt Date: 20170531
  Transmission Date: 20170830
  Serious: Yes (Other)
  Sender: FDA-Public Use
  Company Number: US-SA-2017SA073285

PATIENT
  Age: 73 Year
  Sex: Female
  Weight: 83.91 kg

DRUGS (2)
  1. SOLOSTAR [Concomitant]
     Active Substance: DEVICE
     Indication: TYPE 2 DIABETES MELLITUS
  2. LANTUS SOLOSTAR [Suspect]
     Active Substance: INSULIN GLARGINE
     Indication: TYPE 2 DIABETES MELLITUS
     Dosage: PRESCRIBED 35 UNITS DAILY, BUT SHE USUALLY GIVES HER 32 UNITS DAILY DOSE:32 UNIT(S)
     Route: 051

REACTIONS (4)
  - Dementia Alzheimer^s type [Unknown]
  - Chronic obstructive pulmonary disease [Unknown]
  - Tremor [Unknown]
  - Intentional product misuse [Unknown]
